FAERS Safety Report 11877174 (Version 2)
Quarter: 2016Q1

REPORT INFORMATION
  Report Type: Spontaneous
  Country: AU (occurrence: AU)
  Receive Date: 20151229
  Receipt Date: 20160122
  Transmission Date: 20160526
  Serious: Yes (Death, Other)
  Sender: FDA-Public Use
  Company Number: AU-SA-2015SA215070

PATIENT
  Age: 66 Year
  Sex: Male

DRUGS (1)
  1. BCG FOR IMMUNOTHERAPY [Suspect]
     Active Substance: BACILLUS CALMETTE-GUERIN ANTIGEN, UNSPECIFIED SUBSTRAIN
     Indication: BLADDER CANCER
     Route: 043

REACTIONS (7)
  - Disseminated Bacillus Calmette-Guerin infection [Unknown]
  - Chills [Unknown]
  - Death [Fatal]
  - Hyperhidrosis [Unknown]
  - Musculoskeletal pain [Unknown]
  - Arthralgia [Unknown]
  - Pain in extremity [Unknown]
